FAERS Safety Report 21124434 (Version 2)
Quarter: 2022Q3

REPORT INFORMATION
  Report Type: Spontaneous
  Country: US (occurrence: US)
  Receive Date: 20220725
  Receipt Date: 20220728
  Transmission Date: 20221026
  Serious: Yes (Death, Other)
  Sender: FDA-Public Use
  Company Number: US-ABBVIE-22K-163-4479787-00

PATIENT
  Age: 84 Year
  Sex: Male

DRUGS (3)
  1. LUPRON [Suspect]
     Active Substance: LEUPROLIDE ACETATE
     Indication: Prostate cancer
     Route: 030
  2. LUPRON DEPOT [Suspect]
     Active Substance: LEUPROLIDE ACETATE
     Indication: Prostate cancer
     Dosage: 45 MG
     Route: 065
  3. ORGOVYX [Concomitant]
     Active Substance: RELUGOLIX
     Indication: Product used for unknown indication
     Route: 065

REACTIONS (2)
  - Prostate cancer [Fatal]
  - Pneumonia aspiration [Unknown]
